FAERS Safety Report 7370891-3 (Version None)
Quarter: 2011Q1

REPORT INFORMATION
  Report Type: 
  Country: None (occurrence: None)
  Receive Date: 20110324
  Receipt Date: 20110315
  Transmission Date: 20110831
  Serious: No
  Sender: FDA-Public Use
  Company Number: US-BIOGENIDEC-2011BI009931

PATIENT
  Age: 36 Year
  Sex: Female

DRUGS (1)
  1. TYSABRI [Suspect]
     Indication: MULTIPLE SCLEROSIS
     Route: 042
     Dates: start: 20110224

REACTIONS (6)
  - STRESS [None]
  - EAR INFECTION [None]
  - HYPOAESTHESIA [None]
  - SINUSITIS [None]
  - MUSCULAR WEAKNESS [None]
  - BRONCHITIS [None]
